FAERS Safety Report 22353543 (Version 4)
Quarter: 2023Q2

REPORT INFORMATION
  Report Type: Report from Study
  Country: US (occurrence: US)
  Receive Date: 20230523
  Receipt Date: 20230528
  Transmission Date: 20230721
  Serious: Yes (Other)
  Sender: FDA-Public Use
  Company Number: US-ABBVIE-4767513

PATIENT
  Age: 66 Year
  Sex: Female

DRUGS (5)
  1. HUMIRA [Suspect]
     Active Substance: ADALIMUMAB
     Indication: Hidradenitis
     Dosage: CITRAT FREE, FORM STRENGTH 40MG
     Route: 058
     Dates: start: 20230104
  2. HUMIRA [Suspect]
     Active Substance: ADALIMUMAB
     Dosage: CITRATE FREE, FORM STRENGTH 40MG
     Route: 058
     Dates: start: 20230521
  3. HUMIRA [Suspect]
     Active Substance: ADALIMUMAB
     Dosage: FORM STRENGTH-40 MG?CITRATE FREE
     Route: 058
  4. HUMIRA [Suspect]
     Active Substance: ADALIMUMAB
     Dosage: CITRATE FREE
     Route: 058
     Dates: start: 2018
  5. HUMIRA [Suspect]
     Active Substance: ADALIMUMAB
     Dosage: OFF IT FOR 8-9 WEEK?CITRATE FREE?FORM STRENGTH-40 MG
     Route: 058
     Dates: start: 20230220

REACTIONS (5)
  - Back injury [Recovering/Resolving]
  - Illness [Recovering/Resolving]
  - Injection site urticaria [Unknown]
  - Hidradenitis [Unknown]
  - Bronchitis [Unknown]

NARRATIVE: CASE EVENT DATE: 20230315
